FAERS Safety Report 13245958 (Version 3)
Quarter: 2018Q1

REPORT INFORMATION
  Report Type: Report from Study
  Country: US (occurrence: US)
  Receive Date: 20170217
  Receipt Date: 20180331
  Transmission Date: 20180508
  Serious: No
  Sender: FDA-Public Use
  Company Number: US-ALEXION PHARMACEUTICALS INC.-A201701484

PATIENT
  Sex: Female

DRUGS (2)
  1. SOLIRIS [Suspect]
     Active Substance: ECULIZUMAB
     Dosage: UNK
     Route: 065
  2. SOLIRIS [Suspect]
     Active Substance: ECULIZUMAB
     Indication: PAROXYSMAL NOCTURNAL HAEMOGLOBINURIA
     Dosage: UNK
     Route: 042
     Dates: end: 20170203

REACTIONS (14)
  - Nasopharyngitis [Unknown]
  - Fatigue [Unknown]
  - Pain [Unknown]
  - Oedema peripheral [Unknown]
  - Heart rate decreased [Unknown]
  - Hypotension [Unknown]
  - Rash [Recovering/Resolving]
  - Chromaturia [Unknown]
  - Bronchitis [Unknown]
  - Peripheral swelling [Unknown]
  - Clonal evolution [Unknown]
  - Influenza [Unknown]
  - Dizziness [Unknown]
  - Inappropriate schedule of drug administration [Unknown]
